FAERS Safety Report 5912461-7 (Version None)
Quarter: 2008Q4

REPORT INFORMATION
  Report Type: 
  Country: None (occurrence: None)
  Receive Date: 20081003
  Receipt Date: 20080923
  Transmission Date: 20090506
  Serious: Yes (Hospitalization)
  Sender: FDA-Public Use
  Company Number: 8037361

PATIENT
  Age: 24 Year
  Sex: Female
  Weight: 53.63 kg

DRUGS (3)
  1. KEPPRA [Suspect]
     Indication: CONVULSION
     Dosage: 2000 MG/D PO
     Route: 048
     Dates: start: 20070101
  2. KEPPRA [Suspect]
     Indication: CONVULSION
     Dosage: 1500 MG/D PO
     Route: 048
     Dates: start: 20030101, end: 20070101
  3. FOLIC ACID [Concomitant]

REACTIONS (6)
  - ANAEMIA [None]
  - AURA [None]
  - CONVULSION [None]
  - DYSPNOEA [None]
  - NASOPHARYNGITIS [None]
  - PITTING OEDEMA [None]
